FAERS Safety Report 10344667 (Version 1)
Quarter: 2014Q3

REPORT INFORMATION
  Report Type: Spontaneous
  Country: JP (occurrence: JP)
  Receive Date: 20140728
  Receipt Date: 20140728
  Transmission Date: 20150326
  Serious: Yes (Other)
  Sender: FDA-Public Use
  Company Number: JP-JNJFOC-20140712996

PATIENT
  Sex: Female

DRUGS (1)
  1. DOXIL [Suspect]
     Active Substance: DOXORUBICIN HYDROCHLORIDE
     Indication: OVARIAN CANCER RECURRENT
     Route: 042

REACTIONS (6)
  - Stomatitis [Unknown]
  - Platelet count decreased [Unknown]
  - Granulocytopenia [Unknown]
  - Anaemia [Unknown]
  - White blood cell count decreased [Unknown]
  - Intestinal obstruction [Unknown]
